FAERS Safety Report 9297482 (Version 1)
Quarter: 2013Q2

REPORT INFORMATION
  Report Type: Spontaneous
  Country: US (occurrence: US)
  Receive Date: 20130520
  Receipt Date: 20130520
  Transmission Date: 20140414
  Serious: Yes (Other)
  Sender: FDA-Public Use
  Company Number: US-SANOFI-AVENTIS-2013SA049098

PATIENT
  Age: 53 Year
  Sex: Female

DRUGS (2)
  1. LANTUS SOLOSTAR [Suspect]
     Dosage: DOSE:50 UNIT(S)
     Dates: start: 201302
  2. SOLOSTAR [Suspect]
     Dates: start: 201302

REACTIONS (3)
  - Fibromyalgia [Not Recovered/Not Resolved]
  - Neuropathy peripheral [Not Recovered/Not Resolved]
  - Blood glucose increased [Not Recovered/Not Resolved]
